FAERS Safety Report 10750704 (Version 1)
Quarter: 2015Q1

REPORT INFORMATION
  Report Type: Spontaneous
  Country: US (occurrence: None)
  Receive Date: 20150126
  Receipt Date: 20150126
  Transmission Date: 20150721
  Serious: Yes (Other)
  Sender: FDA-Public Use
  Company Number: A-NJ2014-102241

PATIENT
  Age: 60 Year
  Sex: Female

DRUGS (1)
  1. BOSENTAN\BOSENTAN MONOHYDRATE [Suspect]
     Active Substance: BOSENTAN\BOSENTAN MONOHYDRATE
     Indication: PULMONARY ARTERIAL HYPERTENSION
     Route: 048
     Dates: end: 20140617

REACTIONS (4)
  - Blood alkaline phosphatase increased [None]
  - Alanine aminotransferase increased [None]
  - Liver function test abnormal [None]
  - Aspartate aminotransferase increased [None]
